FAERS Safety Report 11944383 (Version 1)
Quarter: 2016Q1

REPORT INFORMATION
  Report Type: Spontaneous
  Country: US (occurrence: US)
  Receive Date: 20160125
  Receipt Date: 20160125
  Transmission Date: 20160526
  Serious: No
  Sender: FDA-Public Use
  Company Number: US-VIIV HEALTHCARE LIMITED-US2016GSK008234

PATIENT
  Sex: Female

DRUGS (2)
  1. INFLUENZA VACCINE UNSPECIFIED 2015-2016 SEASON SOLUTION FOR INJECTION [Concomitant]
     Active Substance: INFLUENZA VIRUS VACCINE
  2. TRIUMEQ [Suspect]
     Active Substance: ABACAVIR SULFATE\DOLUTEGRAVIR SODIUM\LAMIVUDINE
     Indication: HIV INFECTION
     Dosage: UNK, QD

REACTIONS (2)
  - General symptom [Recovered/Resolved]
  - Pain [Recovered/Resolved]
